FAERS Safety Report 20667819 (Version 20)
Quarter: 2025Q1

REPORT INFORMATION
  Report Type: Report from Study
  Country: US (occurrence: US)
  Receive Date: 20220404
  Receipt Date: 20250313
  Transmission Date: 20250409
  Serious: Yes (Other)
  Sender: TAKEDA
  Company Number: US-TAKEDA-2021TUS078132

PATIENT
  Age: 55 Year
  Sex: Female
  Weight: 59 kg

DRUGS (38)
  1. HUMAN IMMUNOGLOBULIN G [Suspect]
     Active Substance: HUMAN IMMUNOGLOBULIN G
     Indication: Selective IgA immunodeficiency
     Dosage: 25 GRAM, Q4WEEKS
     Dates: start: 20050818
  2. HUMAN IMMUNOGLOBULIN G [Suspect]
     Active Substance: HUMAN IMMUNOGLOBULIN G
     Indication: Selective IgM immunodeficiency
     Dosage: 25 GRAM, Q4WEEKS
     Dates: start: 20070104
  3. HUMAN IMMUNOGLOBULIN G [Suspect]
     Active Substance: HUMAN IMMUNOGLOBULIN G
     Dosage: 22.5 GRAM, Q4WEEKS
  4. HUMAN IMMUNOGLOBULIN G [Suspect]
     Active Substance: HUMAN IMMUNOGLOBULIN G
     Dosage: 20 GRAM, Q4WEEKS
  5. ACETAMINOPHEN [Concomitant]
     Active Substance: ACETAMINOPHEN
  6. EPINEPHRINE [Concomitant]
     Active Substance: EPINEPHRINE
  7. PREDNISONE [Concomitant]
     Active Substance: PREDNISONE
  8. EXEMESTANE [Concomitant]
     Active Substance: EXEMESTANE
  9. MELOXICAM [Concomitant]
     Active Substance: MELOXICAM
  10. METOPROLOL TARTRATE [Concomitant]
     Active Substance: METOPROLOL TARTRATE
  11. SOLU-CORTEF [Concomitant]
     Active Substance: HYDROCORTISONE SODIUM SUCCINATE
  12. CALCIUM\CHOLECALCIFEROL [Concomitant]
     Active Substance: CALCIUM\CHOLECALCIFEROL
  13. SODIUM CHLORIDE [Concomitant]
     Active Substance: SODIUM CHLORIDE
  14. DIETARY SUPPLEMENT [Concomitant]
     Active Substance: DIETARY SUPPLEMENT
  15. EVENING PRIMROSE OIL\HERBALS [Concomitant]
     Active Substance: EVENING PRIMROSE OIL\HERBALS
  16. TREXIMET [Concomitant]
     Active Substance: NAPROXEN SODIUM\SUMATRIPTAN SUCCINATE
  17. LIDOCAINE [Concomitant]
     Active Substance: LIDOCAINE
  18. MAGNESIUM [Concomitant]
     Active Substance: MAGNESIUM
  19. LIDOCAINE AND PRILOCAINE [Concomitant]
     Active Substance: LIDOCAINE\PRILOCAINE
  20. IRON [Concomitant]
     Active Substance: IRON
  21. DEXTROSE [Concomitant]
     Active Substance: DEXTROSE MONOHYDRATE
  22. DIPHENHYDRAMINE HYDROCHLORIDE [Concomitant]
     Active Substance: DIPHENHYDRAMINE HYDROCHLORIDE
  23. LEVOTHYROXINE SODIUM [Concomitant]
     Active Substance: LEVOTHYROXINE SODIUM
  24. LORATADINE [Concomitant]
     Active Substance: LORATADINE
  25. NITROFURANTOIN [Concomitant]
     Active Substance: NITROFURANTOIN
     Indication: Immunodeficiency
  26. FISH OIL [Concomitant]
     Active Substance: FISH OIL
  27. ZOMIG [Concomitant]
     Active Substance: ZOLMITRIPTAN
  28. SEASONIQUE [Concomitant]
     Active Substance: ETHINYL ESTRADIOL\LEVONORGESTREL
  29. XYZAL [Concomitant]
     Active Substance: LEVOCETIRIZINE DIHYDROCHLORIDE
  30. Glucosamine MSM [Concomitant]
  31. LETROZOLE [Concomitant]
     Active Substance: LETROZOLE
  32. Collagen plus c [Concomitant]
  33. VITAMIN C [Concomitant]
     Active Substance: ASCORBIC ACID
  34. VITAMIN A [Concomitant]
     Active Substance: VITAMIN A
  35. Zinc chelated [Concomitant]
  36. GABAPENTIN [Concomitant]
     Active Substance: GABAPENTIN
  37. HERBALS\TURMERIC [Concomitant]
     Active Substance: HERBALS\TURMERIC
  38. ROSUVASTATIN CALCIUM [Concomitant]
     Active Substance: ROSUVASTATIN CALCIUM

REACTIONS (14)
  - Breast cancer female [Unknown]
  - COVID-19 [Recovered/Resolved]
  - Urinary tract infection [Unknown]
  - Musculoskeletal pain [Unknown]
  - Ophthalmic migraine [Unknown]
  - Vitreous floaters [Unknown]
  - Product dose omission issue [Unknown]
  - Localised infection [Unknown]
  - Skin infection [Recovered/Resolved]
  - Cystitis [Unknown]
  - Sinusitis [Unknown]
  - Pain in extremity [Unknown]
  - Back pain [Unknown]
  - Arthralgia [Unknown]

NARRATIVE: CASE EVENT DATE: 20240605
